FAERS Safety Report 5025791-0 (Version None)
Quarter: 2006Q2

REPORT INFORMATION
  Report Type: 
  Country: None (occurrence: None)
  Receive Date: 20060608
  Receipt Date: 20060608
  Transmission Date: 20061013
  Serious: No
  Sender: FDA-Public Use
  Company Number: None

PATIENT
  Age: 44 Year
  Sex: Male

DRUGS (1)
  1. NEUPOGEN [Suspect]
     Route: 065

REACTIONS (2)
  - ANGINA PECTORIS [None]
  - DYSPNOEA [None]
